FAERS Safety Report 25471601 (Version 1)
Quarter: 2025Q2

REPORT INFORMATION
  Report Type: Spontaneous
  Country: US (occurrence: US)
  Receive Date: 20250624
  Receipt Date: 20250624
  Transmission Date: 20250716
  Serious: No
  Sender: JOHNSON AND JOHNSON
  Company Number: US-JNJFOC-20250627899

PATIENT
  Age: 32 Year
  Sex: Male

DRUGS (2)
  1. RILPIVIRINE [Suspect]
     Active Substance: RILPIVIRINE
     Indication: HIV infection
     Dosage: UNK, MO, FOR 2 MONTHS, THEN EVERY 2 MONTHS STARTING AT MONTH 4, INJECTION 3ML VIAL
     Route: 030
     Dates: start: 202505
  2. CABOTEGRAVIR [Suspect]
     Active Substance: CABOTEGRAVIR
     Indication: HIV infection
     Dosage: UNK, MO, FOR 2 MONTHS, THEN EVERY 2 MONTHS STARTING AT MONTH 4, INJECTION 3ML VIAL
     Route: 030
     Dates: start: 202505

REACTIONS (1)
  - Back pain [Not Recovered/Not Resolved]
